FAERS Safety Report 19103303 (Version 5)
Quarter: 2021Q3

REPORT INFORMATION
  Report Type: Spontaneous
  Country: IN (occurrence: IN)
  Receive Date: 20210407
  Receipt Date: 20210906
  Transmission Date: 20211014
  Serious: Yes (Other)
  Sender: FDA-Public Use
  Company Number: IN-PFIZER INC-2021218798

PATIENT
  Age: 28 Year
  Sex: Male

DRUGS (3)
  1. LORBRIQUA [Suspect]
     Active Substance: LORLATINIB
     Indication: LUNG CANCER METASTATIC
     Dosage: 50 MG (2 TABLETS OF 25 MG), 1X/DAY
     Route: 048
     Dates: start: 20210223, end: 20210312
  2. LORBRIQUA [Suspect]
     Active Substance: LORLATINIB
     Dosage: 25 MG
     Route: 048
     Dates: start: 20210312
  3. LORBRIQUA [Suspect]
     Active Substance: LORLATINIB
     Dosage: 25 MG, 1X/DAY
     Route: 048
     Dates: start: 20210406

REACTIONS (3)
  - Anaemia [Unknown]
  - Chronic kidney disease [Unknown]
  - Off label use [Unknown]

NARRATIVE: CASE EVENT DATE: 20210406
